FAERS Safety Report 9674961 (Version 2)
Quarter: 2014Q1

REPORT INFORMATION
  Report Type: Report from Study
  Country: FR (occurrence: FR)
  Receive Date: 20131107
  Receipt Date: 20140205
  Transmission Date: 20141002
  Serious: Yes (Death, Other)
  Sender: FDA-Public Use
  Company Number: FR-ASTELLAS-2013EU009525

PATIENT
  Age: 77 Year
  Sex: Male

DRUGS (4)
  1. ENZALUTAMIDE [Suspect]
     Indication: PROSTATE CANCER
     Dosage: 160 MG, UID/QD
     Route: 048
     Dates: start: 20130826, end: 20130829
  2. LASILIX                            /00032601/ [Concomitant]
     Indication: CARDIAC FAILURE
     Dosage: 50 MG, UID/QD
     Route: 048
     Dates: start: 20101001, end: 2013
  3. TEMERIT [Concomitant]
     Indication: HYPERTENSION
     Dosage: 5 MG, UID/QD
     Route: 048
     Dates: start: 20101001, end: 2013
  4. HEMIGOXINE [Concomitant]
     Indication: HYPERTENSION
     Dosage: UNK
     Route: 048
     Dates: start: 20101001, end: 2013

REACTIONS (2)
  - Malignant neoplasm progression [Fatal]
  - Malnutrition [Fatal]
